FAERS Safety Report 9918272 (Version 2)
Quarter: 2014Q1

REPORT INFORMATION
  Report Type: Report from Study
  Country: CA (occurrence: CA)
  Receive Date: 20140224
  Receipt Date: 20140224
  Transmission Date: 20141002
  Serious: Yes (Other)
  Sender: FDA-Public Use
  Company Number: CA-ROCHE-1244654

PATIENT
  Age: 78 Year
  Sex: Female
  Weight: 50 kg

DRUGS (11)
  1. ACTEMRA [Suspect]
     Indication: RHEUMATOID ARTHRITIS
     Route: 042
     Dates: start: 20130530, end: 20130904
  2. METHOTREXATE [Suspect]
     Indication: PRODUCT USED FOR UNKNOWN INDICATION
     Route: 065
  3. PREDNISONE [Suspect]
     Indication: PRODUCT USED FOR UNKNOWN INDICATION
     Route: 065
  4. METFORMIN [Concomitant]
  5. FOLIC ACID [Concomitant]
  6. PANTOLOC [Concomitant]
  7. GLUCONORM (CANADA) [Concomitant]
  8. LIPITOR [Concomitant]
  9. NORVASC [Concomitant]
  10. ASA [Concomitant]
  11. ALTACE [Concomitant]

REACTIONS (8)
  - Drug-induced liver injury [Unknown]
  - Nausea [Unknown]
  - Diarrhoea [Recovered/Resolved]
  - Infusion related reaction [Unknown]
  - Pain [Unknown]
  - Alopecia [Not Recovered/Not Resolved]
  - Drug ineffective [Unknown]
  - Weight decreased [Unknown]
